FAERS Safety Report 12629921 (Version 2)
Quarter: 2016Q3

REPORT INFORMATION
  Report Type: Spontaneous
  Country: DK (occurrence: DE)
  Receive Date: 20160808
  Receipt Date: 20160816
  Transmission Date: 20161109
  Serious: Yes (Other)
  Sender: FDA-Public Use
  Company Number: DE-FRI-1000086680

PATIENT
  Age: 42 Year
  Sex: Female

DRUGS (1)
  1. ESCITALOPRAM [Suspect]
     Active Substance: ESCITALOPRAM OXALATE
     Indication: POST-TRAUMATIC STRESS DISORDER
     Dosage: 10 MG
     Route: 048
     Dates: start: 20160705

REACTIONS (17)
  - Urticaria [Recovered/Resolved]
  - Malaise [Recovered/Resolved]
  - Somnolence [Recovered/Resolved]
  - Paraesthesia [Recovered/Resolved]
  - Micturition urgency [Not Recovered/Not Resolved]
  - Weight increased [Recovered/Resolved]
  - Urinary retention [Recovered/Resolved]
  - Increased appetite [Recovered/Resolved]
  - Muscular weakness [Recovered/Resolved]
  - Nausea [Recovered/Resolved]
  - Tremor [Recovered/Resolved]
  - Dysuria [Recovered/Resolved]
  - Pruritus [Recovered/Resolved]
  - Product use issue [Not Recovered/Not Resolved]
  - Micturition disorder [Recovered/Resolved]
  - Dizziness [Recovered/Resolved]
  - Sexual dysfunction [Recovered/Resolved]

NARRATIVE: CASE EVENT DATE: 20160705
